FAERS Safety Report 14309520 (Version 6)
Quarter: 2018Q2

REPORT INFORMATION
  Report Type: Spontaneous
  Country: CA (occurrence: CA)
  Receive Date: 20171220
  Receipt Date: 20180607
  Transmission Date: 20180711
  Serious: Yes (Other)
  Sender: FDA-Public Use
  Company Number: CA-CELLTRION INC.-2017CA005211

PATIENT

DRUGS (11)
  1. INFLECTRA [Suspect]
     Active Substance: INFLIXIMAB-DYYB
     Indication: CROHN^S DISEASE
     Dosage: 400 MG, (EVERY 2, 6 AND THEN EVERY 8 WEEKS)
     Route: 042
     Dates: start: 20170427
  2. INFLECTRA [Suspect]
     Active Substance: INFLIXIMAB-DYYB
     Dosage: 5 MG/KG, EVERY 6 WEEKS;
     Route: 042
     Dates: start: 20180524
  3. VITAMIN B12 [Concomitant]
     Active Substance: CYANOCOBALAMIN
     Dosage: 1000 ?G, MONTHLY
  4. INFLECTRA [Suspect]
     Active Substance: INFLIXIMAB-DYYB
     Dosage: 400 MG, EVERY 2, 6 AND THEN EVERY 8 WEEKS
     Route: 042
     Dates: end: 20170928
  5. INFLECTRA [Suspect]
     Active Substance: INFLIXIMAB-DYYB
     Dosage: 400 MG, EVERY 2, 6 AND THEN EVERY 8 WEEKS
     Route: 042
     Dates: end: 20171117
  6. INFLECTRA [Suspect]
     Active Substance: INFLIXIMAB-DYYB
     Dosage: 400 MG, EVERY 6 WEEKS
     Route: 042
     Dates: start: 20180301
  7. LOPERAMIDE [Concomitant]
     Active Substance: LOPERAMIDE
     Dosage: UNK
  8. AZATHIOPRINE. [Concomitant]
     Active Substance: AZATHIOPRINE
     Dosage: UNK
  9. INFLECTRA [Suspect]
     Active Substance: INFLIXIMAB-DYYB
     Dosage: 400 MG, EVERY 6 WEEKS
     Route: 042
     Dates: start: 20180117
  10. IMURAN [Concomitant]
     Active Substance: AZATHIOPRINE
     Dosage: UNK
  11. IMODIUM [Concomitant]
     Active Substance: LOPERAMIDE HYDROCHLORIDE
     Dosage: 2 MG, UNK
     Route: 065
     Dates: start: 1979

REACTIONS (13)
  - Hypochromasia [Not Recovered/Not Resolved]
  - Fatigue [Unknown]
  - Crohn^s disease [Recovered/Resolved]
  - Condition aggravated [Recovered/Resolved]
  - Inappropriate schedule of drug administration [Unknown]
  - Anxiety [Not Recovered/Not Resolved]
  - Lymphocyte count decreased [Not Recovered/Not Resolved]
  - Hypertension [Unknown]
  - Drug level below therapeutic [Not Recovered/Not Resolved]
  - Mean cell volume decreased [Not Recovered/Not Resolved]
  - Loss of personal independence in daily activities [Unknown]
  - Mean cell haemoglobin decreased [Not Recovered/Not Resolved]
  - Drug effect incomplete [Unknown]

NARRATIVE: CASE EVENT DATE: 2017
